FAERS Safety Report 5922715-6 (Version None)
Quarter: 2008Q4

REPORT INFORMATION
  Report Type: 
  Country: None (occurrence: None)
  Receive Date: 20081017
  Receipt Date: 20070809
  Transmission Date: 20090506
  Serious: No
  Sender: FDA-Public Use
  Company Number: US-ABBOTT-08P-163-0462111-00

PATIENT
  Sex: Female

DRUGS (3)
  1. HYDROCODONE BITARTRATE + ACETAMINOPHEN [Suspect]
     Indication: ARTHRITIS
     Route: 048
  2. HYDROCODONE BITARTRATE + ACETAMINOPHEN [Suspect]
     Indication: BACK PAIN
  3. HYDROCODONE BITARTRATE + ACETAMINOPHEN [Suspect]
     Indication: CARDIOVASCULAR DISORDER

REACTIONS (1)
  - DRUG INEFFECTIVE [None]
